FAERS Safety Report 22045461 (Version 1)
Quarter: 2023Q1

REPORT INFORMATION
  Report Type: Spontaneous
  Country: US (occurrence: None)
  Receive Date: 20230227
  Receipt Date: 20230227
  Transmission Date: 20230418
  Serious: Yes (Hospitalization)
  Sender: FDA-Public Use
  Company Number: None

PATIENT
  Age: 65 Year
  Sex: Female

DRUGS (14)
  1. OPSUMIT [Suspect]
     Active Substance: MACITENTAN
     Indication: Pulmonary arterial hypertension
     Dosage: FREQUENCY : DAILY;?
     Route: 048
     Dates: start: 20220727
  2. SILDENAFIL [Concomitant]
  3. WARFARIN [Concomitant]
     Active Substance: WARFARIN
  4. PRAVASTATIN [Concomitant]
  5. VITAMINS [Concomitant]
     Active Substance: VITAMINS
  6. METOPROLOL [Concomitant]
     Active Substance: METOPROLOL
  7. METHOTREXATE [Concomitant]
  8. CULTURELLE [Concomitant]
  9. FERROUS SULFATE [Concomitant]
  10. DIGOXIN [Concomitant]
     Active Substance: DIGOXIN
  11. PHOSLO [Concomitant]
  12. ASPIRIN [Concomitant]
  13. TYLENOL [Concomitant]
     Active Substance: ACETAMINOPHEN
  14. OMEGA-3 ACIDS [Concomitant]
     Active Substance: OMEGA-3 FATTY ACIDS

REACTIONS (2)
  - Diarrhoea [None]
  - Small intestinal obstruction [None]

NARRATIVE: CASE EVENT DATE: 20230225
